FAERS Safety Report 8956808 (Version 1)
Quarter: 2012Q4

REPORT INFORMATION
  Report Type: Report from Study
  Country: BE (occurrence: BE)
  Receive Date: 20121210
  Receipt Date: 20121210
  Transmission Date: 20130627
  Serious: Yes (Hospitalization, Other)
  Sender: FDA-Public Use
  Company Number: BE-ABBOTT-12P-013-1018095-00

PATIENT
  Age: 55 Year
  Sex: Female
  Weight: 90 kg

DRUGS (4)
  1. HUMIRA [Suspect]
     Indication: RHEUMATOID ARTHRITIS
     Dates: start: 20120329, end: 20120610
  2. HUMIRA [Suspect]
     Dates: start: 20120712
  3. LEDERTREXATE [Concomitant]
     Indication: ARTHRITIS
     Dates: start: 20120906
  4. FOLIC ACID [Concomitant]
     Indication: PRODUCT USED FOR UNKNOWN INDICATION
     Dates: start: 20120906

REACTIONS (2)
  - Spigelian hernia [Recovered/Resolved]
  - Scar pain [Unknown]
